FAERS Safety Report 12194481 (Version 2)
Quarter: 2016Q2

REPORT INFORMATION
  Report Type: Report from Study
  Country: NL (occurrence: NL)
  Receive Date: 20160321
  Receipt Date: 20160408
  Transmission Date: 20160815
  Serious: Yes (Life-Threatening, Other)
  Sender: FDA-Public Use
  Company Number: PHHY2016NL036749

PATIENT
  Age: 62 Year
  Sex: Female

DRUGS (6)
  1. THYRAX [Concomitant]
     Active Substance: LEVOTHYROXINE
     Indication: PRODUCT USED FOR UNKNOWN INDICATION
     Dosage: 25 UG, TID
     Route: 065
  2. ACLASTA [Suspect]
     Active Substance: ZOLEDRONIC ACID
     Indication: OSTEOPOROSIS POSTMENOPAUSAL
     Dosage: 5 MG, Q12MO (1X PER 52 WEEKS)
     Route: 042
     Dates: start: 20130304
  3. ACLASTA [Suspect]
     Active Substance: ZOLEDRONIC ACID
     Indication: FOOT FRACTURE
     Dosage: 5 MG, Q12MO (1X PER 52 WEEKS)
     Route: 042
     Dates: start: 20150318, end: 20150318
  4. ACLASTA [Suspect]
     Active Substance: ZOLEDRONIC ACID
     Dosage: 5 MG, Q12MO (1X PER 52 WEEKS)
     Route: 042
     Dates: start: 20160317
  5. SYMBICORT [Concomitant]
     Active Substance: BUDESONIDE\FORMOTEROL FUMARATE DIHYDRATE
     Indication: PRODUCT USED FOR UNKNOWN INDICATION
     Dosage: 1 DF, BID (200/6 UG)
     Route: 065
  6. SUMATRIPTAN. [Concomitant]
     Active Substance: SUMATRIPTAN
     Indication: MIGRAINE
     Dosage: 50 UG, UNK
     Route: 065

REACTIONS (2)
  - Superficial spreading melanoma stage II [Unknown]
  - Postoperative wound infection [Recovered/Resolved]

NARRATIVE: CASE EVENT DATE: 201504
